FAERS Safety Report 12172989 (Version 2)
Quarter: 2016Q2

REPORT INFORMATION
  Report Type: Spontaneous
  Country: GB (occurrence: GB)
  Receive Date: 20160311
  Receipt Date: 20160513
  Transmission Date: 20160815
  Serious: Yes (Disabling)
  Sender: FDA-Public Use
  Company Number: GB-PFIZER INC-2015340445

PATIENT
  Age: 16 Year
  Sex: Female

DRUGS (1)
  1. DETRUSITOL [Suspect]
     Active Substance: TOLTERODINE TARTRATE
     Indication: URINARY TRACT DISCOMFORT
     Dosage: 1 NOCTE
     Route: 048
     Dates: start: 20141009, end: 20160120

REACTIONS (2)
  - Visual acuity reduced [Not Recovered/Not Resolved]
  - Accommodation disorder [Not Recovered/Not Resolved]

NARRATIVE: CASE EVENT DATE: 20150903
